FAERS Safety Report 8782334 (Version 1)
Quarter: 2012Q4

REPORT INFORMATION
  Report Type: 
  Country: US (occurrence: US)
  Receive Date: 20120913
  Receipt Date: 20120913
  Transmission Date: 20130627
  Serious: No
  Sender: FDA-Public Use
  Company Number: US-VERTEX PHARMACEUTICAL INC.-2012-019854

PATIENT
  Age: 50 None
  Sex: Female
  Weight: 77 kg

DRUGS (5)
  1. INCIVEK [Suspect]
     Indication: HEPATITIS C
     Dosage: 750 mg, tid
     Route: 048
     Dates: start: 20120616
  2. RIBAVIRIN [Concomitant]
     Indication: HEPATITIS C
     Dosage: 3 DF, UNK
     Dates: start: 20120616
  3. PEGASYS [Concomitant]
     Indication: HEPATITIS C
     Dosage: 180 ?g, UNK
     Route: 058
     Dates: start: 20120616
  4. LIDOCAINE                          /00033402/ [Concomitant]
  5. HYDROCORTISONE                     /00028602/ [Concomitant]

REACTIONS (7)
  - Drug dose omission [Recovered/Resolved]
  - Malaise [Not Recovered/Not Resolved]
  - Anorectal discomfort [Not Recovered/Not Resolved]
  - Diarrhoea [Not Recovered/Not Resolved]
  - Anal pruritus [Not Recovered/Not Resolved]
  - Nausea [Not Recovered/Not Resolved]
  - Vomiting [Unknown]
